FAERS Safety Report 5611482-1 (Version None)
Quarter: 2008Q1

REPORT INFORMATION
  Report Type: 
  Country: None (occurrence: None)
  Receive Date: 20080201
  Receipt Date: 20071009
  Transmission Date: 20080703
  Serious: No
  Sender: FDA-Public Use
  Company Number: A0686654A

PATIENT
  Age: 70 Year
  Sex: Female

DRUGS (6)
  1. LOTRONEX [Suspect]
     Indication: IRRITABLE BOWEL SYNDROME
     Dosage: 1MG TWICE PER DAY
     Route: 048
     Dates: start: 20061001
  2. THYROID TAB [Concomitant]
  3. BLOOD PRESSURE MEDICATION [Concomitant]
  4. UNKNOWN MEDICATION [Concomitant]
  5. LOMOTIL [Concomitant]
  6. IMODIUM [Concomitant]

REACTIONS (1)
  - DRUG INEFFECTIVE [None]
